FAERS Safety Report 10022087 (Version 1)
Quarter: 2014Q1

REPORT INFORMATION
  Report Type: Spontaneous
  Country: US (occurrence: US)
  Receive Date: 20140319
  Receipt Date: 20140319
  Transmission Date: 20141002
  Serious: Yes (Other)
  Sender: FDA-Public Use
  Company Number: US-GLAXOSMITHKLINE-A1064704A

PATIENT
  Sex: Female

DRUGS (2)
  1. LAMOTRIGINE [Suspect]
     Indication: EPILEPSY
     Route: 048
  2. LAMICTAL XR [Concomitant]
     Indication: EPILEPSY
     Dosage: 650MG PER DAY
     Route: 048

REACTIONS (1)
  - Convulsion [Recovered/Resolved]
